FAERS Safety Report 11094582 (Version 4)
Quarter: 2020Q4

REPORT INFORMATION
  Report Type: Report from Study
  Country: US (occurrence: US)
  Receive Date: 20150506
  Receipt Date: 20201207
  Transmission Date: 20210113
  Serious: Yes (Hospitalization, Disabling, Other)
  Sender: FDA-Public Use
  Company Number: US-SANOFI-AVENTIS-2013SA087432

PATIENT
  Age: 67 Year
  Sex: Female

DRUGS (3)
  1. TERIFLUNOMIDE. [Suspect]
     Active Substance: TERIFLUNOMIDE
     Dosage: 14 MG,QD
     Route: 048
     Dates: start: 20170210
  2. TERIFLUNOMIDE. [Suspect]
     Active Substance: TERIFLUNOMIDE
     Dosage: 14 MG,QD
     Route: 048
     Dates: start: 20130811
  3. TERIFLUNOMIDE. [Suspect]
     Active Substance: TERIFLUNOMIDE
     Indication: MULTIPLE SCLEROSIS
     Dosage: 14 MG,QD
     Route: 048

REACTIONS (39)
  - Alopecia [Not Recovered/Not Resolved]
  - Sneezing [Unknown]
  - Erythema [Recovered/Resolved]
  - Exostosis [Unknown]
  - Condition aggravated [Unknown]
  - Fall [Unknown]
  - Lethargy [Unknown]
  - Hair texture abnormal [Unknown]
  - Nausea [Recovered/Resolved]
  - Product dose omission issue [Unknown]
  - Pruritus [Unknown]
  - Hot flush [Unknown]
  - Rhinorrhoea [Recovered/Resolved]
  - Mental impairment [Unknown]
  - Nasal discomfort [Unknown]
  - Asthenia [Unknown]
  - Urinary tract infection [Unknown]
  - Musculoskeletal discomfort [Recovering/Resolving]
  - Loss of personal independence in daily activities [Not Recovered/Not Resolved]
  - Skin mass [Not Recovered/Not Resolved]
  - Muscle strain [Recovering/Resolving]
  - Skin disorder [Recovered/Resolved]
  - Arthralgia [Not Recovered/Not Resolved]
  - Pigmentation disorder [Recovered/Resolved]
  - Meniscus injury [Recovering/Resolving]
  - Fatigue [Recovered/Resolved]
  - Temperature intolerance [Unknown]
  - Pain in extremity [Not Recovered/Not Resolved]
  - Rhinorrhoea [Unknown]
  - Muscular weakness [Unknown]
  - Exercise tolerance decreased [Recovered/Resolved]
  - Cough [Recovered/Resolved]
  - Rash [Recovered/Resolved]
  - Syncope [Unknown]
  - Hair colour changes [Unknown]
  - Joint injury [Recovering/Resolving]
  - Pain in extremity [Recovering/Resolving]
  - Nasopharyngitis [Recovered/Resolved]
  - Weight decreased [Recovering/Resolving]

NARRATIVE: CASE EVENT DATE: 20130930
